FAERS Safety Report 5069004-2 (Version None)
Quarter: 2006Q3

REPORT INFORMATION
  Report Type: 
  Country: None (occurrence: None)
  Receive Date: 20060801
  Receipt Date: 20060801
  Transmission Date: 20061208
  Serious: No
  Sender: FDA-Public Use
  Company Number: None

PATIENT
  Sex: Female

DRUGS (1)
  1. AMOXICILLIN [Suspect]
     Dosage: 500 MG TID PO
     Route: 048
     Dates: start: 20060718, end: 20060718

REACTIONS (1)
  - ABDOMINAL PAIN [None]
